FAERS Safety Report 11540522 (Version 1)
Quarter: 2015Q3

REPORT INFORMATION
  Report Type: Spontaneous
  Country: US (occurrence: US)
  Receive Date: 20150923
  Receipt Date: 20150923
  Transmission Date: 20151125
  Serious: No
  Sender: FDA-Public Use
  Company Number: US-BEH-2015049033

PATIENT
  Sex: Female
  Weight: 77 kg

DRUGS (17)
  1. POTASSIUM CHLORIDE. [Concomitant]
     Active Substance: POTASSIUM CHLORIDE
  2. XOPENEX [Concomitant]
     Active Substance: LEVALBUTEROL HYDROCHLORIDE
     Dosage: 0.31MG/3 ML SOLUTION
  3. HEPARIN [Concomitant]
     Active Substance: HEPARIN SODIUM
     Dosage: 100 UNITS/ML
  4. PREDNISONE. [Concomitant]
     Active Substance: PREDNISONE
  5. PRIVIGEN [Suspect]
     Active Substance: HUMAN IMMUNOGLOBULIN G
     Indication: HYPOGAMMAGLOBULINAEMIA
     Dosage: 20 G (40 G AS NEEDED)
     Route: 042
     Dates: start: 20150213, end: 20150305
  6. EPIPEN [Concomitant]
     Active Substance: EPINEPHRINE
     Dosage: AUTO-INJECTOR
  7. ZITHROMAX [Concomitant]
     Active Substance: AZITHROMYCIN DIHYDRATE
  8. MUCINEX COLD AND SINUS LIQUID [Concomitant]
  9. VERAPAMIL [Concomitant]
     Active Substance: VERAPAMIL HYDROCHLORIDE
  10. ADVAIR HFA [Concomitant]
     Active Substance: FLUTICASONE PROPIONATE\SALMETEROL XINAFOATE
     Dosage: 500 - 50 DISKUS
  11. ACETAMINOPHEN. [Concomitant]
     Active Substance: ACETAMINOPHEN
  12. DIPHENHYDRAMINE. [Concomitant]
     Active Substance: DIPHENHYDRAMINE
  13. ACYCLOVIR. [Concomitant]
     Active Substance: ACYCLOVIR
  14. SINGULAIR [Concomitant]
     Active Substance: MONTELUKAST SODIUM
  15. METFORMIN HYDROCHLORIDE. [Concomitant]
     Active Substance: METFORMIN HYDROCHLORIDE
  16. SODIUM CHLORIDE. [Concomitant]
     Active Substance: SODIUM CHLORIDE
     Dosage: 0.9%
  17. DELTA D3 400 [Concomitant]
     Dosage: UNIT TABLET

REACTIONS (1)
  - Influenza like illness [Recovering/Resolving]
